FAERS Safety Report 4420852-9 (Version None)
Quarter: 2004Q3

REPORT INFORMATION
  Report Type: 
  Country: None (occurrence: None)
  Receive Date: 20040809
  Receipt Date: 20040625
  Transmission Date: 20050211
  Serious: Yes (Hospitalization)
  Sender: FDA-Public Use
  Company Number: 200417792GDDC

PATIENT
  Age: 46 Year
  Sex: Female

DRUGS (1)
  1. FUROSEMIDE [Suspect]
     Indication: OEDEMA
     Route: 048

REACTIONS (5)
  - DRUG DEPENDENCE [None]
  - FACE OEDEMA [None]
  - OEDEMA PERIPHERAL [None]
  - RENAL TUBULAR DISORDER [None]
  - SELF-MEDICATION [None]
